FAERS Safety Report 15375291 (Version 1)
Quarter: 2018Q3

REPORT INFORMATION
  Report Type: Spontaneous
  Country: AU (occurrence: AU)
  Receive Date: 20180912
  Receipt Date: 20180912
  Transmission Date: 20181010
  Serious: Yes (Death, Hospitalization)
  Sender: FDA-Public Use
  Company Number: AU-ALLERGAN-1844500US

PATIENT
  Age: 11 Year
  Sex: Male

DRUGS (1)
  1. BOTULINUM TOXIN TYPE A UNK [Suspect]
     Active Substance: BOTULINUM TOXIN TYPE A
     Indication: DYSTONIA
     Dosage: UNK, SINGLE
     Route: 030

REACTIONS (1)
  - Death [Fatal]
